FAERS Safety Report 10128716 (Version 1)
Quarter: 2014Q2

REPORT INFORMATION
  Report Type: Spontaneous
  Country: GB (occurrence: GB)
  Receive Date: 20140428
  Receipt Date: 20140428
  Transmission Date: 20141212
  Serious: Yes (Disabling)
  Sender: FDA-Public Use
  Company Number: GB-JNJFOC-20140414710

PATIENT
  Age: 89 Year
  Sex: Male
  Weight: 64 kg

DRUGS (4)
  1. XARELTO [Suspect]
     Indication: PRODUCT USED FOR UNKNOWN INDICATION
     Route: 048
     Dates: start: 20140129
  2. DRONEDARONE [Concomitant]
     Route: 065
     Dates: start: 20131217, end: 20140228
  3. WARFARIN SODIUM [Concomitant]
     Route: 065
     Dates: start: 20131204, end: 20140314
  4. AMOXICILLIN [Concomitant]
     Route: 065
     Dates: start: 20140115, end: 20140122

REACTIONS (1)
  - Dizziness [Recovering/Resolving]
